FAERS Safety Report 7148914-6 (Version None)
Quarter: 2010Q4

REPORT INFORMATION
  Report Type: 
  Country: None (occurrence: None)
  Receive Date: 20101209
  Receipt Date: 20101129
  Transmission Date: 20110411
  Serious: Yes (Hospitalization, Congenital Anomaly)
  Sender: FDA-Public Use
  Company Number: A0873518A

PATIENT
  Sex: Female
  Weight: 3.8 kg

DRUGS (7)
  1. PAXIL CR [Suspect]
     Dosage: 25MG TWICE PER DAY
  2. RISPERDAL [Concomitant]
  3. LITHIUM [Concomitant]
     Dates: end: 20031203
  4. DEPAKOTE [Concomitant]
     Dates: end: 20031203
  5. PRENATAL VITAMINS [Concomitant]
  6. INTAL [Concomitant]
  7. ALBUTEROL [Concomitant]

REACTIONS (7)
  - CARDIAC OPERATION [None]
  - CONGENITAL CARDIOVASCULAR ANOMALY [None]
  - DRUG EXPOSURE DURING PREGNANCY [None]
  - EBSTEIN'S ANOMALY [None]
  - MACROSOMIA [None]
  - PATENT DUCTUS ARTERIOSUS [None]
  - VENTRICULAR HYPOPLASIA [None]
